FAERS Safety Report 7757887-4 (Version None)
Quarter: 2011Q3

REPORT INFORMATION
  Report Type: 
  Country: None (occurrence: None)
  Receive Date: 20110918
  Receipt Date: 20110906
  Transmission Date: 20111222
  Serious: Yes (Death)
  Sender: FDA-Public Use
  Company Number: US-BRISTOL-MYERS SQUIBB COMPANY-16065799

PATIENT

DRUGS (4)
  1. CARMUSTINE [Suspect]
     Indication: MALIGNANT GLIOMA
     Dosage: OVER 30 MIN.
     Route: 042
  2. CISPLATIN [Suspect]
     Indication: MALIGNANT GLIOMA
     Dosage: 1DF:60-90 MG/SQ.M 10-15 MINUTES.
     Route: 013
  3. MANNITOL [Concomitant]
     Indication: MALIGNANT GLIOMA
     Dosage: 30 MIN.
  4. DEXAMETHASONE [Concomitant]
     Route: 042

REACTIONS (1)
  - HYDROCEPHALUS [None]
